FAERS Safety Report 5871961-9 (Version None)
Quarter: 2008Q3

REPORT INFORMATION
  Report Type: 
  Country: None (occurrence: None)
  Receive Date: 20080905
  Receipt Date: 20080902
  Transmission Date: 20090109
  Serious: Yes (Death)
  Sender: FDA-Public Use
  Company Number: US-WYE-H05826908

PATIENT
  Age: 30 Year
  Sex: Female

DRUGS (4)
  1. PRISTIQ [Suspect]
     Indication: DEPRESSION
     Route: 048
     Dates: start: 20080821, end: 20080801
  2. PRISTIQ [Suspect]
     Indication: ANXIETY
  3. MORPHINE [Concomitant]
     Dosage: UNKNOWN
  4. ADDERALL 10 [Concomitant]
     Dosage: UNKNOWN

REACTIONS (1)
  - DEATH [None]
